FAERS Safety Report 19687527 (Version 1)
Quarter: 2021Q3

REPORT INFORMATION
  Report Type: Spontaneous
  Country: US (occurrence: US)
  Receive Date: 20210811
  Receipt Date: 20210811
  Transmission Date: 20211014
  Serious: No
  Sender: FDA-Public Use
  Company Number: US-PFIZER INC-2016535952

PATIENT
  Age: 50 Year
  Sex: Male

DRUGS (21)
  1. AMBIEN [Concomitant]
     Active Substance: ZOLPIDEM TARTRATE
     Dosage: 10 MG, AS NEEDED (AT BEDTIME)
     Route: 048
  2. XANAX [Concomitant]
     Active Substance: ALPRAZOLAM
     Indication: MUSCLE SPASMS
  3. NUVIGIL [Concomitant]
     Active Substance: ARMODAFINIL
     Dosage: 150 MG, 1X/DAY (EVERY MORNING)
     Route: 048
  4. VITAMIN D3 [Concomitant]
     Active Substance: CHOLECALCIFEROL
     Dosage: 2000 IU, UNK
     Route: 048
  5. FERROUS SULFATE. [Concomitant]
     Active Substance: FERROUS SULFATE
     Dosage: 160 MG, 1X/DAY
     Route: 048
  6. MS CONTIN [Concomitant]
     Active Substance: MORPHINE SULFATE
     Dosage: 30 MG, 2X/DAY
     Route: 048
  7. LYRICA [Suspect]
     Active Substance: PREGABALIN
     Dosage: 400 MG, DAILY (100 MG IN AM AND AFTERNOON AND 200 MG AT NIGHT)
     Route: 048
  8. MS CONTIN [Concomitant]
     Active Substance: MORPHINE SULFATE
     Dosage: 15 MG, 2X/DAY
     Route: 048
  9. PRILOSEC [Concomitant]
     Active Substance: OMEPRAZOLE MAGNESIUM
     Dosage: 20 MG, 2X/DAY
     Route: 048
  10. DITROPAN [Concomitant]
     Active Substance: OXYBUTYNIN CHLORIDE
     Dosage: 25 MG, DAILY (2 TABS IN THE AM 1 TAB AT NOON AND 2 TABS IN THE EVENING)
     Route: 048
  11. LYRICA [Suspect]
     Active Substance: PREGABALIN
     Indication: MULTIPLE SCLEROSIS
     Dosage: 100 MG, 3X/DAY
     Route: 048
     Dates: start: 20170906
  12. XANAX [Concomitant]
     Active Substance: ALPRAZOLAM
     Indication: SLEEP DISORDER
  13. MIRALAX [Concomitant]
     Active Substance: POLYETHYLENE GLYCOL 3350
     Indication: CONSTIPATION
     Dosage: 17 G, AS NEEDED (DAILY)
     Route: 048
  14. MAGNESIUM [Concomitant]
     Active Substance: MAGNESIUM
     Dosage: 1 CAPSULE, 1X/DAY
     Route: 048
  15. ELAVIL [Concomitant]
     Active Substance: AMITRIPTYLINE HYDROCHLORIDE
     Dosage: 1 TABLET, 1X/DAY (DAILY AT BEDTIME)
     Route: 048
  16. PERCOCET [Concomitant]
     Active Substance: ACETAMINOPHEN\OXYCODONE HYDROCHLORIDE
     Indication: PAIN
     Dosage: 3 DF, AS NEEDED [OXYCODONE HYDROCHLORIDE 5 MG]/[PARACETAMOL 325 MG] EVERY 8 HOURS
     Route: 048
  17. REQUIP [Concomitant]
     Active Substance: ROPINIROLE HYDROCHLORIDE
     Dosage: 1 MG, 1X/DAY (DAILY AT BEDTIME)
     Route: 048
  18. XANAX [Concomitant]
     Active Substance: ALPRAZOLAM
     Indication: ANXIETY
     Dosage: 1 TABLET, AS NEEDED (AT BEDTIME)
     Route: 048
  19. EXCEDRIN [Concomitant]
     Active Substance: ACETAMINOPHEN\ASPIRIN\CAFFEINE
     Indication: MIGRAINE
     Dosage: UNK UNK, AS NEEDED[ACETYLSALICYLIC ACID 200MG]/[PARACETAMOL 200MG]/[CAFFEINE 65MG]1?2TABS EVERY 4HRS
     Route: 048
  20. LIORESAL [Concomitant]
     Active Substance: BACLOFEN
     Dosage: 10 MG, 3X/DAY
     Route: 048
  21. CEROVITE [Concomitant]
     Active Substance: FOLIC ACID\IRON
     Dosage: 1 TABLET, 1X/DAY
     Route: 048

REACTIONS (2)
  - Insomnia [Unknown]
  - Off label use [Unknown]

NARRATIVE: CASE EVENT DATE: 20170906
